FAERS Safety Report 8033159-8 (Version None)
Quarter: 2012Q1

REPORT INFORMATION
  Report Type: 
  Country: None (occurrence: None)
  Receive Date: 20120110
  Receipt Date: 20120110
  Transmission Date: 20120608
  Serious: Yes (Life-Threatening)
  Sender: FDA-Public Use
  Company Number: None

PATIENT
  Age: 36 Year
  Sex: Female
  Weight: 81.646 kg

DRUGS (2)
  1. LISINOPRIL [Suspect]
     Indication: HYPERTENSION
     Dosage: 10MG
     Route: 048
     Dates: start: 20110601, end: 20110615
  2. LISINOPRIL [Concomitant]
     Dosage: 10MG
     Route: 048
     Dates: start: 20120101, end: 20120107

REACTIONS (5)
  - PRODUCT SUBSTITUTION ISSUE [None]
  - DIZZINESS [None]
  - ASTHENIA [None]
  - TREMOR [None]
  - PALPITATIONS [None]
